FAERS Safety Report 5866254-X (Version None)
Quarter: 2008Q3

REPORT INFORMATION
  Report Type: 
  Country: None (occurrence: None)
  Receive Date: 20080829
  Receipt Date: 20080819
  Transmission Date: 20090109
  Serious: Yes (Other)
  Sender: FDA-Public Use
  Company Number: US-PFIZER INC-2008070838

PATIENT
  Sex: Female
  Weight: 53.5 kg

DRUGS (2)
  1. CHANTIX [Suspect]
     Indication: SMOKING CESSATION THERAPY
     Dates: start: 20070101, end: 20080801
  2. ASACOL [Concomitant]
     Indication: CROHN'S DISEASE

REACTIONS (7)
  - ABDOMINAL PAIN UPPER [None]
  - ABNORMAL DREAMS [None]
  - CROHN'S DISEASE [None]
  - DEPRESSION [None]
  - MOOD ALTERED [None]
  - NAUSEA [None]
  - VOMITING [None]
